FAERS Safety Report 8965163 (Version 1)
Quarter: 2012Q4

REPORT INFORMATION
  Report Type: 
  Country: DE (occurrence: FR)
  Receive Date: 20121213
  Receipt Date: 20121213
  Transmission Date: 20130627
  Serious: Yes (Life-Threatening, Hospitalization)
  Sender: FDA-Public Use
  Company Number: FR-BRISTOL-MYERS SQUIBB COMPANY-17192212

PATIENT
  Age: 50 Year
  Sex: Female

DRUGS (10)
  1. GLUCOPHAGE [Suspect]
     Indication: DIABETES MELLITUS
     Dates: start: 20121018
  2. BACLOFEN [Suspect]
     Indication: ALCOHOLISM
     Dates: start: 20121018
  3. CYMBALTA [Suspect]
     Dates: start: 20121018
  4. BROMAZEPAM [Suspect]
     Dates: start: 20121018
  5. INSULIN [Concomitant]
  6. PLAVIX [Concomitant]
  7. SECTRAL [Concomitant]
  8. PARIET [Concomitant]
  9. KARDEGIC [Concomitant]
  10. LASILIX [Concomitant]

REACTIONS (1)
  - Cardiogenic shock [Recovered/Resolved]
